FAERS Safety Report 6197792-0 (Version None)
Quarter: 2009Q2

REPORT INFORMATION
  Report Type: 
  Country: None (occurrence: None)
  Receive Date: 20090521
  Receipt Date: 20090515
  Transmission Date: 20091009
  Serious: Yes (Other)
  Sender: FDA-Public Use
  Company Number: SE-PFIZER INC-2009192936

PATIENT
  Age: 46 Year

DRUGS (2)
  1. XANOR DEPOT [Suspect]
     Indication: FATIGUE
     Dosage: 1 MG, 2X/DAY
     Route: 065
     Dates: start: 20080702
  2. XANOR DEPOT [Suspect]
     Indication: POST-TRAUMATIC STRESS DISORDER

REACTIONS (8)
  - BLISTER [None]
  - MUSCLE TWITCHING [None]
  - ODYNOPHAGIA [None]
  - ORAL DISCOMFORT [None]
  - PHARYNGEAL ERYTHEMA [None]
  - PRURITUS [None]
  - RASH [None]
  - SKIN HAEMORRHAGE [None]
